FAERS Safety Report 4307048-6 (Version None)
Quarter: 2004Q1

REPORT INFORMATION
  Report Type: 
  Country: None (occurrence: None)
  Receive Date: 20040226
  Receipt Date: 20040226
  Transmission Date: 20041129
  Serious: Yes (Other)
  Sender: FDA-Public Use
  Company Number: None

PATIENT
  Age: 32 Year
  Sex: Male

DRUGS (1)
  1. SEPTOCAINE [Suspect]
     Indication: LOCAL ANAESTHESIA
     Dosage: N/A ONE TIME DOSE
     Route: 048
     Dates: start: 20040217

REACTIONS (6)
  - ANXIETY [None]
  - COMA [None]
  - CONVULSION [None]
  - FLUSHING [None]
  - HYPOVENTILATION [None]
  - STARING [None]
